FAERS Safety Report 10342127 (Version 3)
Quarter: 2014Q4

REPORT INFORMATION
  Report Type: Spontaneous
  Country: US (occurrence: US)
  Receive Date: 20140725
  Receipt Date: 20141104
  Transmission Date: 20150528
  Serious: No
  Sender: FDA-Public Use
  Company Number: US-PFIZER INC-2014205883

PATIENT
  Age: 53 Year
  Sex: Female

DRUGS (4)
  1. ADVIL [Suspect]
     Active Substance: IBUPROFEN
     Indication: PAIN
     Dosage: 20+ A DAY
     Route: 048
  2. ADVIL [Suspect]
     Active Substance: IBUPROFEN
     Dosage: 2400 MG, DAILY
     Route: 048
     Dates: start: 2007
  3. ADVIL [Suspect]
     Active Substance: IBUPROFEN
     Indication: MYALGIA
     Dosage: UNK
     Route: 048
  4. IBUPROFEN. [Suspect]
     Active Substance: IBUPROFEN
     Indication: MYALGIA
     Dosage: 800 MG, THREE TIMES A DAY
     Route: 048
     Dates: end: 2010

REACTIONS (8)
  - Drug ineffective [Unknown]
  - Cluster headache [Unknown]
  - Nausea [Unknown]
  - Overdose [Unknown]
  - Malaise [Unknown]
  - Vomiting [Unknown]
  - Gastrointestinal pain [Unknown]
  - Liver disorder [Unknown]
